FAERS Safety Report 9460703 (Version 2)
Quarter: 2013Q3

REPORT INFORMATION
  Report Type: Report from Study
  Country: CA (occurrence: CA)
  Receive Date: 20130815
  Receipt Date: 20130827
  Transmission Date: 20140515
  Serious: Yes (Death, Hospitalization, Other)
  Sender: FDA-Public Use
  Company Number: CA-ABBOTT-13P-028-1132832-00

PATIENT
  Age: 84 Year
  Sex: Male
  Weight: 104.42 kg

DRUGS (2)
  1. LUPRON DEPOT [Suspect]
     Indication: PROSTATE CANCER
     Dosage: 3 COURSES
     Route: 030
     Dates: start: 201212
  2. HYDROMORPHONE [Concomitant]
     Indication: PRODUCT USED FOR UNKNOWN INDICATION
     Route: 058
     Dates: start: 20130729, end: 20130729

REACTIONS (3)
  - Hypercalcaemia [Fatal]
  - Failure to thrive [Fatal]
  - Prostate cancer metastatic [Fatal]
